FAERS Safety Report 7231037-5 (Version None)
Quarter: 2011Q1

REPORT INFORMATION
  Report Type: 
  Country: None (occurrence: None)
  Receive Date: 20110118
  Receipt Date: 20110105
  Transmission Date: 20110831
  Serious: Yes (Life-Threatening, Other)
  Sender: FDA-Public Use
  Company Number: US-ELI_LILLY_AND_COMPANY-US201007004938

PATIENT
  Sex: Female

DRUGS (11)
  1. XANAX [Concomitant]
  2. PERCOCET [Concomitant]
     Dosage: 5/325 D/F, EVERY FOUR HOURS AS NEEDED
  3. CYMBALTA [Suspect]
     Dosage: 60 MG, UNKNOWN
     Route: 048
  4. FLEXERIL [Concomitant]
  5. CYMBALTA [Suspect]
     Indication: ANXIETY
     Dosage: 30 MG, UNKNOWN
     Route: 048
     Dates: end: 20100112
  6. CYMBALTA [Suspect]
     Dosage: 1 D/F, UNKNOWN
  7. PEPCID [Concomitant]
     Dosage: 20 MG, 2/D
     Route: 048
  8. MULTI-VITAMIN [Concomitant]
  9. HORMONES AND RELATED AGENTS [Concomitant]
  10. ATIVAN [Concomitant]
     Dosage: 1 MG, THREE TIMES DAILY AS NEEDED
     Route: 048
  11. THYROID THERAPY [Concomitant]

REACTIONS (6)
  - DERMATITIS PSORIASIFORM [None]
  - RENAL DISORDER [None]
  - VASCULITIS [None]
  - ERYTHEMA MULTIFORME [None]
  - CELLULITIS [None]
  - SCAR [None]
